FAERS Safety Report 7112909-9 (Version None)
Quarter: 2010Q4

REPORT INFORMATION
  Report Type: 
  Country: None (occurrence: None)
  Receive Date: 20101119
  Receipt Date: 20100603
  Transmission Date: 20110411
  Serious: No
  Sender: FDA-Public Use
  Company Number: US-BRISTOL-MYERS SQUIBB COMPANY-15133093

PATIENT
  Age: 78 Year
  Sex: Female
  Weight: 72 kg

DRUGS (5)
  1. AVALIDE [Suspect]
     Indication: BLOOD PRESSURE
     Dosage: 1 D.F:1 TAB STARTED WITH 1/2 TAB, THEN 1 TAB + REDUCED TO 1/2 TAB
     Route: 048
     Dates: start: 20100101
  2. ATENOLOL [Concomitant]
  3. ADVIL [Concomitant]
  4. MULTI-VITAMIN [Concomitant]
  5. ASCORBIC ACID [Concomitant]

REACTIONS (2)
  - DIZZINESS [None]
  - NAUSEA [None]
